FAERS Safety Report 14747045 (Version 1)
Quarter: 2018Q2

REPORT INFORMATION
  Report Type: Spontaneous
  Country: US (occurrence: US)
  Receive Date: 20180405
  Receipt Date: 20180405
  Transmission Date: 20180711
  Serious: Yes (Disabling)
  Sender: FDA-Public Use
  Company Number: None

PATIENT
  Age: 67 Year
  Sex: Female
  Weight: 48.6 kg

DRUGS (4)
  1. SOTALOL. [Concomitant]
     Active Substance: SOTALOL
  2. VALACYCLOVIR [Suspect]
     Active Substance: VALACYCLOVIR HYDROCHLORIDE
     Indication: HERPES VIRUS INFECTION
     Dosage: 4 TABLET(S);OTHER FREQUENCY:2 TAB 12 HRS APART; ORAL?
     Route: 048
     Dates: start: 20180326, end: 20180327
  3. LOPERAMIDE [Concomitant]
     Active Substance: LOPERAMIDE
  4. MULTIVITAMIN [Concomitant]
     Active Substance: VITAMINS

REACTIONS (9)
  - Impaired work ability [None]
  - Gait disturbance [None]
  - Joint swelling [None]
  - Arthralgia [None]
  - Cognitive disorder [None]
  - Neuromyopathy [None]
  - Pain in extremity [None]
  - Peripheral swelling [None]
  - Lymphadenopathy [None]

NARRATIVE: CASE EVENT DATE: 20180327
